FAERS Safety Report 16297279 (Version 2)
Quarter: 2019Q3

REPORT INFORMATION
  Report Type: Report from Study
  Country: CA (occurrence: CA)
  Receive Date: 20190510
  Receipt Date: 20190708
  Transmission Date: 20191004
  Serious: Yes (Other)
  Sender: FDA-Public Use
  Company Number: CA-SA-2018SA032079

PATIENT
  Age: 30 Year
  Sex: Female

DRUGS (11)
  1. METHYLPREDNISOLONE. [Concomitant]
     Active Substance: METHYLPREDNISOLONE
     Indication: PREMEDICATION
     Dosage: 1 G,UNK
     Route: 042
     Dates: start: 20180129, end: 20180202
  2. REACTINE [CETIRIZINE HYDROCHLORIDE] [Concomitant]
     Active Substance: CETIRIZINE HYDROCHLORIDE
     Indication: PREMEDICATION
     Dosage: 5 MG,UNK
     Route: 048
     Dates: start: 20180129, end: 20180202
  3. VITAMIN D [VITAMIN D NOS] [Concomitant]
     Active Substance: VITAMIN D NOS
     Dosage: UNK UNK,UNK
     Route: 048
     Dates: start: 2018
  4. ACETAMINOPHEN. [Concomitant]
     Active Substance: ACETAMINOPHEN
     Indication: PREMEDICATION
     Dosage: 1 G,UNK
     Route: 048
     Dates: start: 20180129, end: 20180202
  5. SYNTHROID [Concomitant]
     Active Substance: LEVOTHYROXINE SODIUM
     Indication: THYROID DISORDER
     Dosage: 112 MCG
     Route: 048
  6. GARDASIL 9 [Concomitant]
     Active Substance: HUMAN PAPILLOMAVIRUS TYPE 11 L1 CAPSID PROTEIN ANTIGEN\HUMAN PAPILLOMAVIRUS TYPE 16 L1 CAPSID PROTEIN ANTIGEN\HUMAN PAPILLOMAVIRUS TYPE 18 L1 CAPSID PROTEIN ANTIGEN\HUMAN PAPILLOMAVIRUS TYPE 31 L1 CAPSID PROTEIN ANTIGEN\HUMAN PAPILLOMAVIRUS TYPE 33 L1 CAPSID PROTEIN ANTIGEN\HUMAN PAPILLOMAVIRUS TYPE
     Dosage: UNK UNK, UNK
     Route: 065
     Dates: start: 201904
  7. ALEMTUZUMAB [Suspect]
     Active Substance: ALEMTUZUMAB
     Indication: RELAPSING-REMITTING MULTIPLE SCLEROSIS
     Dosage: 12 MG,QD
     Route: 041
     Dates: start: 20180129, end: 20180202
  8. CYANOCOBALAMIN. [Concomitant]
     Active Substance: CYANOCOBALAMIN
     Dosage: UNK UNK,UNK
     Route: 048
  9. RANITIDINE. [Concomitant]
     Active Substance: RANITIDINE
     Indication: PREMEDICATION
     Dosage: 150 MG,UNK
     Route: 048
     Dates: start: 20180129, end: 20180202
  10. ACYCLOVIR [ACICLOVIR] [Concomitant]
     Active Substance: ACYCLOVIR
     Indication: PREMEDICATION
     Dosage: 200 MG,UNK
     Route: 048
     Dates: start: 20180129
  11. SULFATRIM [Concomitant]
     Active Substance: SULFAMETHOXAZOLE\TRIMETHOPRIM
     Dosage: UNK UNK,UNK
     Route: 048

REACTIONS (39)
  - Injury [Recovering/Resolving]
  - Dysphagia [Recovered/Resolved]
  - Blood thyroid stimulating hormone increased [Not Recovered/Not Resolved]
  - Bacterial test positive [Recovered/Resolved]
  - Heart rate increased [Recovered/Resolved]
  - Gastroenteritis [Recovered/Resolved]
  - Secretion discharge [Recovering/Resolving]
  - Fungal skin infection [Not Recovered/Not Resolved]
  - Urine analysis abnormal [Not Recovered/Not Resolved]
  - Oropharyngeal pain [Recovered/Resolved]
  - Insomnia [Recovered/Resolved]
  - Urinary sediment present [Not Recovered/Not Resolved]
  - Precancerous cells present [Recovered/Resolved]
  - Nausea [Recovered/Resolved]
  - Neutrophil count increased [Recovered/Resolved]
  - Red blood cells urine [Recovered/Resolved]
  - Nasopharyngitis [Recovered/Resolved]
  - Fatigue [Not Recovered/Not Resolved]
  - Neutrophil percentage increased [Recovered/Resolved]
  - Blood urine present [Recovered/Resolved]
  - Muscle spasms [Recovered/Resolved]
  - Decreased appetite [Recovered/Resolved]
  - Infection [Recovered/Resolved]
  - Immunosuppression [Not Recovered/Not Resolved]
  - Lymphocyte count decreased [Not Recovered/Not Resolved]
  - Haematoma [Not Recovered/Not Resolved]
  - Menorrhagia [Recovered/Resolved]
  - Irritability [Recovered/Resolved]
  - Fatigue [Not Recovered/Not Resolved]
  - Lymphocyte percentage decreased [Not Recovered/Not Resolved]
  - Goitre [Recovered/Resolved]
  - Vomiting [Recovered/Resolved]
  - Chronic sinusitis [Recovered/Resolved]
  - Drug exposure before pregnancy [Unknown]
  - Basedow^s disease [Recovered/Resolved]
  - Human papilloma virus test positive [Recovering/Resolving]
  - Pyrexia [Recovered/Resolved]
  - Streptococcal infection [Recovered/Resolved]
  - Erythema [Not Recovered/Not Resolved]

NARRATIVE: CASE EVENT DATE: 2018
